FAERS Safety Report 19140019 (Version 1)
Quarter: 2021Q2

REPORT INFORMATION
  Report Type: Spontaneous
  Country: US (occurrence: US)
  Receive Date: 20210415
  Receipt Date: 20210415
  Transmission Date: 20210717
  Serious: No
  Sender: FDA-Public Use
  Company Number: US-DUCHESNAY-2020US000047

PATIENT
  Age: 43 Year
  Sex: Female

DRUGS (1)
  1. OSPHENA [Suspect]
     Active Substance: OSPEMIFENE
     Indication: ATROPHIC VULVOVAGINITIS
     Dosage: 60 MILLIGRAM, QD
     Route: 048
     Dates: start: 201810

REACTIONS (5)
  - Lichen sclerosus [Not Recovered/Not Resolved]
  - Off label use [Unknown]
  - Labelled drug-drug interaction medication error [Unknown]
  - Vaginal discharge [Unknown]
  - Vulvovaginal mycotic infection [Not Recovered/Not Resolved]

NARRATIVE: CASE EVENT DATE: 201910
